FAERS Safety Report 4845482-6 (Version None)
Quarter: 2005Q4

REPORT INFORMATION
  Report Type: 
  Country: None (occurrence: None)
  Receive Date: 20051205
  Receipt Date: 20051028
  Transmission Date: 20060501
  Serious: Yes (Other)
  Sender: FDA-Public Use
  Company Number: PHBS2005IE15937

PATIENT
  Sex: Female

DRUGS (2)
  1. TOFRANIL [Suspect]
     Route: 065
  2. ANTI-HISTAMINE TAB [Concomitant]

REACTIONS (2)
  - CARDIOMYOPATHY [None]
  - OVERDOSE [None]
